FAERS Safety Report 5294664-0 (Version None)
Quarter: 2007Q2

REPORT INFORMATION
  Report Type: 
  Country: None (occurrence: None)
  Receive Date: 20070412
  Receipt Date: 20070330
  Transmission Date: 20071010
  Serious: Yes (Other)
  Sender: FDA-Public Use
  Company Number: FR-NOVOPROD-260612

PATIENT
  Age: 56 Year
  Sex: Female
  Weight: 66 kg

DRUGS (5)
  1. NORDITROPIN SIMPLEXX [Suspect]
     Indication: GROWTH HORMONE DEFICIENCY
     Dosage: .9 MG, QD
     Route: 058
     Dates: start: 20040220
  2. GLUCOPHAGE [Concomitant]
     Indication: DRUG USE FOR UNKNOWN INDICATION
     Dosage: 3 G, QD
     Route: 048
  3. LIPANTHYL [Concomitant]
     Indication: DRUG USE FOR UNKNOWN INDICATION
     Dosage: 2 TAB, QD
     Route: 048
  4. FUMAFER [Concomitant]
     Indication: DRUG USE FOR UNKNOWN INDICATION
     Dosage: 2 TAB, QD
     Route: 048
  5. LEVOTHYROXINE SODIUM [Concomitant]
     Dosage: 175 UG, QD
     Route: 048

REACTIONS (1)
  - BLADDER SQUAMOUS CELL CARCINOMA STAGE II [None]
